FAERS Safety Report 7821541 (Version 3)
Quarter: 2014Q3

REPORT INFORMATION
  Report Type: Spontaneous
  Country: US (occurrence: US)
  Receive Date: 20110222
  Receipt Date: 20140801
  Transmission Date: 20150326
  Serious: Yes (Other)
  Sender: FDA-Public Use
  Company Number: US-ROCHE-738892

PATIENT
  Age: 25 Year
  Sex: Female
  Weight: 104.3 kg

DRUGS (5)
  1. SOTRET [Suspect]
     Active Substance: ISOTRETINOIN
     Indication: ACNE
     Route: 065
  2. ACCUTANE [Suspect]
     Active Substance: ISOTRETINOIN
     Indication: ACNE
     Route: 048
     Dates: start: 1997, end: 2006
  3. ACCUTANE [Suspect]
     Active Substance: ISOTRETINOIN
     Route: 048
  4. ACCUTANE [Suspect]
     Active Substance: ISOTRETINOIN
     Route: 048
  5. ACCUTANE [Suspect]
     Active Substance: ISOTRETINOIN
     Dosage: DOSE FORM: CAPSULE
     Route: 048
     Dates: start: 20071130, end: 20081114

REACTIONS (9)
  - Melanocytic naevus [Unknown]
  - Colitis ulcerative [Unknown]
  - Dermatitis atopic [Unknown]
  - Gastrointestinal injury [Unknown]
  - Inflammatory bowel disease [Unknown]
  - Cervical dysplasia [Unknown]
  - Nephrolithiasis [Unknown]
  - Depression [Unknown]
  - Hidradenitis [Unknown]

NARRATIVE: CASE EVENT DATE: 1998
